FAERS Safety Report 7711571-1 (Version None)
Quarter: 2011Q3

REPORT INFORMATION
  Report Type: 
  Country: None (occurrence: None)
  Receive Date: 20110826
  Receipt Date: 20110818
  Transmission Date: 20111222
  Serious: Yes (Hospitalization, Other)
  Sender: FDA-Public Use
  Company Number: US-BAYER-2011-021178

PATIENT
  Age: 43 Year
  Sex: Female
  Weight: 76.644 kg

DRUGS (11)
  1. LIBRIUM [Concomitant]
     Dosage: 25 MG, QD
  2. VITAMIN D [Concomitant]
     Indication: HYPOVITAMINOSIS
     Dosage: UNK UNK, QD
     Dates: start: 20070101
  3. SEASONALE [Concomitant]
     Dosage: UNK UNK, QD
  4. SYMBYAX [Concomitant]
     Dosage: 1 DF, QD
  5. ZOCOR [Concomitant]
     Dosage: 10 MG, QD
  6. TRAZODONE HYDROCHLORIDE [Concomitant]
     Dosage: 100 MG, QD
  7. CYMBALTA [Concomitant]
     Dosage: 30 MG, QD
  8. YAZ [Suspect]
     Indication: PREMENSTRUAL SYNDROME
     Dosage: UNK
     Route: 048
     Dates: start: 20071101
  9. YASMIN [Suspect]
     Indication: PREMENSTRUAL SYNDROME
     Dosage: UNK
     Route: 048
     Dates: start: 20071101
  10. YAZ [Suspect]
  11. YASMIN [Suspect]

REACTIONS (1)
  - DEEP VEIN THROMBOSIS [None]
